FAERS Safety Report 4758525-5 (Version None)
Quarter: 2005Q3

REPORT INFORMATION
  Report Type: 
  Country: None (occurrence: None)
  Receive Date: 20050830
  Receipt Date: 20050830
  Transmission Date: 20060218
  Serious: Yes (Other)
  Sender: FDA-Public Use
  Company Number: None

PATIENT
  Age: 12 Year
  Sex: Female
  Weight: 42.4 kg

DRUGS (2)
  1. CLARITIN [Suspect]
     Dosage: ONE PO Q DAY
     Route: 048
     Dates: start: 20050601
  2. CLARITIN [Suspect]
     Dosage: ONE PO Q DAY
     Route: 048
     Dates: start: 20050602

REACTIONS (2)
  - RASH [None]
  - SWELLING [None]
